FAERS Safety Report 11081150 (Version 1)
Quarter: 2015Q2

REPORT INFORMATION
  Report Type: Spontaneous
  Country: US (occurrence: None)
  Receive Date: 20150429
  Receipt Date: 20150429
  Transmission Date: 20150821
  Serious: Yes (Other)
  Sender: FDA-Public Use
  Company Number: 69536-2015-00001

PATIENT
  Sex: Female

DRUGS (1)
  1. BRONKAID DUAL ACTION FORMULA [Suspect]
     Active Substance: EPHEDRINE SULFATE\GUAIFENESIN
     Dosage: 1 TBLT/DAY, 3 DAYS, ORAL
     Route: 048
     Dates: start: 201412

REACTIONS (6)
  - Heart rate increased [None]
  - Speech disorder [None]
  - Disorientation [None]
  - Dizziness [None]
  - Syncope [None]
  - Dyspnoea [None]

NARRATIVE: CASE EVENT DATE: 201412
